FAERS Safety Report 8098429-6 (Version None)
Quarter: 2012Q1

REPORT INFORMATION
  Report Type: 
  Country: None (occurrence: None)
  Receive Date: 20120131
  Receipt Date: 20120123
  Transmission Date: 20120608
  Serious: Yes (Other)
  Sender: FDA-Public Use
  Company Number: GB-JNJFOC-20120105492

PATIENT
  Sex: Male

DRUGS (1)
  1. NICORETTE [Suspect]
     Indication: SMOKING CESSATION THERAPY
     Route: 048

REACTIONS (5)
  - SOFT TISSUE INFECTION [None]
  - SECRETION DISCHARGE [None]
  - INSOMNIA [None]
  - EYELID OEDEMA [None]
  - ADVERSE DRUG REACTION [None]
